FAERS Safety Report 7788362-9 (Version None)
Quarter: 2011Q3

REPORT INFORMATION
  Report Type: 
  Country: None (occurrence: None)
  Receive Date: 20110927
  Receipt Date: 20110915
  Transmission Date: 20111222
  Serious: Yes (Hospitalization)
  Sender: FDA-Public Use
  Company Number: 2011P1008924

PATIENT
  Age: 38 Year
  Sex: Female
  Weight: 46.7205 kg

DRUGS (5)
  1. KLONOPIN [Concomitant]
  2. DEXEDRINE [Suspect]
     Indication: ATTENTION DEFICIT/HYPERACTIVITY DISORDER
     Dosage: 10 MG;QD;PO
     Route: 048
  3. DEXTROSTAT [Suspect]
     Indication: ATTENTION DEFICIT/HYPERACTIVITY DISORDER
     Dosage: QD;PO
     Route: 048
     Dates: start: 19980101
  4. CELEXA [Concomitant]
  5. DEXEDRINE [Suspect]
     Indication: ATTENTION DEFICIT/HYPERACTIVITY DISORDER
     Dosage: QD;PO
     Route: 048

REACTIONS (9)
  - AGITATION [None]
  - DRUG PRESCRIBING ERROR [None]
  - HYPERHIDROSIS [None]
  - HEADACHE [None]
  - INSOMNIA [None]
  - INCORRECT DOSE ADMINISTERED [None]
  - PALPITATIONS [None]
  - FEELING ABNORMAL [None]
  - MOOD ALTERED [None]
